FAERS Safety Report 4787615-6 (Version None)
Quarter: 2005Q4

REPORT INFORMATION
  Report Type: 
  Country: None (occurrence: None)
  Receive Date: 20051003
  Receipt Date: 20050923
  Transmission Date: 20060501
  Serious: Yes (Other)
  Sender: FDA-Public Use
  Company Number: 2005133175

PATIENT
  Age: 63 Year
  Sex: Female

DRUGS (6)
  1. LIPITOR [Suspect]
     Indication: BLOOD CHOLESTEROL
     Dosage: 40 MG (40 MG, 1 IN 1 D), ORAL
     Route: 048
     Dates: start: 20040401
  2. FOSAMAX [Concomitant]
  3. CALTRATE (CALCIUM CARBONATE) [Concomitant]
  4. PLAVIX [Concomitant]
  5. ASTRIX (ACETYLSALICYLIC ACID) [Concomitant]
  6. MINAX (METOPROLOL TARTRATE) [Concomitant]

REACTIONS (6)
  - CEREBROVASCULAR ACCIDENT [None]
  - DRY SKIN [None]
  - RASH [None]
  - SECRETION DISCHARGE [None]
  - SKIN CHAPPED [None]
  - SKIN SWELLING [None]
